FAERS Safety Report 9479585 (Version 1)
Quarter: 2013Q3

REPORT INFORMATION
  Report Type: Spontaneous
  Country: US (occurrence: US)
  Receive Date: 20130827
  Receipt Date: 20130827
  Transmission Date: 20140515
  Serious: Yes (Other)
  Sender: FDA-Public Use
  Company Number: US-JNJFOC-20130807492

PATIENT
  Age: 47 Year
  Sex: Female
  Weight: 90.72 kg

DRUGS (1)
  1. BENADRYL ALLERGY ULTRATAB [Suspect]
     Indication: SEASONAL ALLERGY
     Route: 048

REACTIONS (1)
  - Amphetamines positive [Unknown]
